FAERS Safety Report 10393243 (Version 1)
Quarter: 2014Q3

REPORT INFORMATION
  Report Type: Spontaneous
  Country: IN (occurrence: None)
  Receive Date: 20140815
  Receipt Date: 20140815
  Transmission Date: 20150326
  Serious: Yes (Other)
  Sender: FDA-Public Use
  Company Number: AUR-APL-2014-08726

PATIENT
  Age: 52 Year
  Sex: Female

DRUGS (8)
  1. FLUCONAZOLE (FLUCONAZOLE) [Concomitant]
     Active Substance: FLUCONAZOLE
  2. LEVOCETIRIZINE [Suspect]
     Active Substance: LEVOCETIRIZINE
     Indication: RHINITIS ALLERGIC
  3. LEVOFLOXACIN (LEVOFLOXACIN) [Concomitant]
     Active Substance: LEVOFLOXACIN
  4. METHDILAZINE (METHDILAZINE) [Concomitant]
  5. FEXOFENADINE (FEXOFENADINE) [Concomitant]
  6. PARACETAMOL (PARACETAMOL) [Concomitant]
     Active Substance: ACETAMINOPHEN
  7. CETIRIZINE (CETIRIZINE) [Suspect]
     Active Substance: CETIRIZINE HYDROCHLORIDE
     Indication: PRODUCT USED FOR UNKNOWN INDICATION
  8. ETORICOXIB (ETORICOXIB) [Concomitant]
     Active Substance: ETORICOXIB

REACTIONS (6)
  - Oedema [None]
  - Skin lesion [None]
  - Erythema [None]
  - Drug eruption [None]
  - Macule [None]
  - Pruritus [None]
